FAERS Safety Report 24736725 (Version 2)
Quarter: 2025Q1

REPORT INFORMATION
  Report Type: Report from Study
  Country: US (occurrence: US)
  Receive Date: 20241216
  Receipt Date: 20250101
  Transmission Date: 20250409
  Serious: Yes (Other)
  Sender: ABBVIE
  Company Number: US-ABBVIE-6043818

PATIENT
  Age: 60 Year
  Sex: Female
  Weight: 39 kg

DRUGS (14)
  1. RINVOQ [Suspect]
     Active Substance: UPADACITINIB
     Indication: Crohn^s disease
     Dosage: 45 MILLIGRAM? FORM STRENGTH: 45? FORM STRENGTH UNITS: MILLIGRAM
     Route: 048
     Dates: start: 20241101, end: 202412
  2. HYDROCODONE [Concomitant]
     Active Substance: HYDROCODONE
     Indication: Pain
  3. ACETAMINOPHEN [Concomitant]
     Active Substance: ACETAMINOPHEN
     Indication: Pain
  4. SUMATRIPTAN [Concomitant]
     Active Substance: SUMATRIPTAN
     Indication: Migraine
  5. MIDODRINE [Concomitant]
     Active Substance: MIDODRINE
     Indication: Blood pressure management
  6. VITAMIN B12 [Concomitant]
     Active Substance: CYANOCOBALAMIN
     Indication: Vitamin supplementation
  7. ATORVASTATIN [Concomitant]
     Active Substance: ATORVASTATIN
     Indication: Blood cholesterol abnormal
  8. ROBAXIN [Concomitant]
     Active Substance: METHOCARBAMOL
     Indication: Procedural pain
  9. PROMETHAZINE [Concomitant]
     Active Substance: PROMETHAZINE HYDROCHLORIDE
     Indication: Nausea
  10. ASPIRIN [Concomitant]
     Active Substance: ASPIRIN
     Indication: Arrhythmia
  11. GABAPENTIN [Concomitant]
     Active Substance: GABAPENTIN
     Indication: Migraine
  12. PANTOPRAZOLE [Concomitant]
     Active Substance: PANTOPRAZOLE
     Indication: Dyspepsia
  13. COLESTIPOL [Concomitant]
     Active Substance: COLESTIPOL
     Indication: Diarrhoea
  14. TRICOR [Concomitant]
     Active Substance: FENOFIBRATE
     Indication: Blood cholesterol abnormal

REACTIONS (3)
  - Vaginal polyp [Recovering/Resolving]
  - Vaginal ulceration [Recovering/Resolving]
  - Movement disorder [Unknown]

NARRATIVE: CASE EVENT DATE: 20241201
